FAERS Safety Report 6581634-5 (Version None)
Quarter: 2010Q1

REPORT INFORMATION
  Report Type: 
  Country: None (occurrence: None)
  Receive Date: 20100211
  Receipt Date: 20100211
  Transmission Date: 20100710
  Serious: No
  Sender: FDA-Public Use
  Company Number: None

PATIENT
  Age: 62 Year
  Sex: Female
  Weight: 44.4525 kg

DRUGS (1)
  1. TYLENOL (CAPLET) [Suspect]
     Indication: PAIN
     Dosage: 325 MG. 2 X DAY PO
     Route: 048
     Dates: start: 20091110, end: 20091117

REACTIONS (3)
  - ASTHENIA [None]
  - DIZZINESS [None]
  - NAUSEA [None]
